FAERS Safety Report 7245960-9 (Version None)
Quarter: 2011Q1

REPORT INFORMATION
  Report Type: 
  Country: None (occurrence: None)
  Receive Date: 20110126
  Receipt Date: 20110120
  Transmission Date: 20110831
  Serious: Yes (Other)
  Sender: FDA-Public Use
  Company Number: FI-ABBOTT-11P-055-0699897-00

PATIENT
  Sex: Female

DRUGS (9)
  1. OXIKLORIN [Concomitant]
     Indication: RHEUMATOID ARTHRITIS
     Dosage: DAILY DOSE: 300MG
  2. TREXAN [Concomitant]
     Indication: RHEUMATOID ARTHRITIS
     Route: 048
  3. PREDNISOLONE [Concomitant]
     Indication: RHEUMATOID ARTHRITIS
     Dosage: 15-5MG DAILY
     Route: 048
  4. HUMIRA [Suspect]
  5. ETANERCEPT [Suspect]
     Indication: RHEUMATOID ARTHRITIS
     Dates: start: 20100401, end: 20100820
  6. TREXAN [Concomitant]
     Dates: end: 20091101
  7. PREDNISOLONE [Concomitant]
     Dosage: 20MG
     Route: 048
  8. HUMIRA [Suspect]
     Indication: RHEUMATOID ARTHRITIS
     Dates: end: 20100201
  9. PREDNISOLONE [Concomitant]
     Dosage: 7.5

REACTIONS (3)
  - DYSPNOEA [None]
  - COUGH [None]
  - COMPUTERISED TOMOGRAM ABNORMAL [None]
